FAERS Safety Report 5467527-5 (Version None)
Quarter: 2007Q3

REPORT INFORMATION
  Report Type: 
  Country: None (occurrence: None)
  Receive Date: 20070921
  Receipt Date: 20070907
  Transmission Date: 20080115
  Serious: No
  Sender: FDA-Public Use
  Company Number: 2007S1008485

PATIENT
  Age: 66 Year
  Sex: Female
  Weight: 68.0396 kg

DRUGS (8)
  1. PHENYTOIN SODIUM [Suspect]
     Indication: CONVULSION
     Dosage: 300 MG; 3 TIMESA DAY; ORAL, 100 MG; AT BEDTIME; ORAL
     Route: 048
     Dates: start: 20050101, end: 20070801
  2. PHENYTOIN SODIUM [Suspect]
     Indication: CONVULSION
     Dosage: 300 MG; 3 TIMESA DAY; ORAL, 100 MG; AT BEDTIME; ORAL
     Route: 048
     Dates: start: 20070801
  3. LEVOTHROID [Concomitant]
  4. ATENOLOL [Concomitant]
  5. ATENOLOL /0014802 [Concomitant]
  6. COUMADIN [Concomitant]
  7. LOVASTATIN [Concomitant]
  8. OXYBUTYNIN CHLORIDE [Concomitant]

REACTIONS (4)
  - DRUG TOXICITY [None]
  - GRAND MAL CONVULSION [None]
  - TRANSIENT ISCHAEMIC ATTACK [None]
  - URINARY TRACT INFECTION [None]
